FAERS Safety Report 12310618 (Version 1)
Quarter: 2016Q2

REPORT INFORMATION
  Report Type: Spontaneous
  Country: US (occurrence: US)
  Receive Date: 20160427
  Receipt Date: 20160427
  Transmission Date: 20160815
  Serious: No
  Sender: FDA-Public Use
  Company Number: GXBR2016US000765

PATIENT
  Sex: Female
  Weight: 50.79 kg

DRUGS (2)
  1. ATORVASTATIN CALCIUM. [Suspect]
     Active Substance: ATORVASTATIN CALCIUM
     Indication: BLOOD CHOLESTEROL
     Dosage: 40 MG, QHS
     Route: 048
  2. SENNA [Concomitant]
     Active Substance: SENNA LEAF\SENNOSIDES\SENNOSIDES A AND B
     Indication: CONSTIPATION
     Dosage: UNK DF, UNK

REACTIONS (5)
  - Confusional state [Unknown]
  - Middle insomnia [Unknown]
  - Disturbance in attention [Unknown]
  - Memory impairment [Unknown]
  - Fatigue [Unknown]
